FAERS Safety Report 6592718-X (Version None)
Quarter: 2010Q1

REPORT INFORMATION
  Report Type: 
  Country: None (occurrence: None)
  Receive Date: 20100212
  Receipt Date: 20100202
  Transmission Date: 20100710
  Serious: Yes (Life-Threatening, Hospitalization)
  Sender: FDA-Public Use
  Company Number: 1000011668

PATIENT
  Age: 88 Year
  Sex: Female

DRUGS (11)
  1. FOSFOMYCIN (FOSFOMYCIN TROMETAMOL) (GRANULATE) [Suspect]
     Indication: CYSTITIS
     Dosage: 0.4286 GM (3 GM, 1 IN 1 WK), ORAL
     Route: 048
     Dates: start: 20091212, end: 20091231
  2. SINTROM [Suspect]
     Indication: ARRHYTHMIA
     Dates: end: 20091231
  3. DIFFU K [Suspect]
     Indication: HYPOKALAEMIA
     Dosage: 600 MG (600 MG,  1 IN 1 D), ORAL
     Route: 048
     Dates: end: 20091231
  4. COZAAR [Suspect]
     Indication: HYPERTENSION
     Dosage: 1 DOSAGE FORMS (1 DOSAGE FORMS, 1 IN  1 D), ORAL
     Route: 048
     Dates: end: 20091231
  5. URBANYL [Suspect]
     Indication: ANXIETY
     Dosage: 0.5 DOSAGE FORMS (0.5 DOSAGE FORMS, 1 IN 1 D), ORAL
     Route: 048
     Dates: end: 20091231
  6. CALCIUM D3 [Suspect]
     Indication: CALCIUM DEFICIENCY
     Dosage: 1 DOSAGE FORMS (1 DOSAGE FORMS, 1 IN 1 D), ORAL
     Route: 048
     Dates: end: 20091231
  7. NEO-MERCAZOLE TAB [Concomitant]
  8. NITROGLYCERIN [Concomitant]
  9. LOXEN [Concomitant]
  10. LASILIX [Concomitant]
  11. CORDARONE [Concomitant]

REACTIONS (14)
  - ABDOMINAL DISTENSION [None]
  - ABDOMINAL HERNIA [None]
  - ABDOMINAL PAIN [None]
  - ABDOMINAL WALL HAEMATOMA [None]
  - ANAEMIA [None]
  - ASTHENIA [None]
  - CACHEXIA [None]
  - CARDIAC FAILURE [None]
  - DECUBITUS ULCER [None]
  - INFLAMMATION [None]
  - LEUKOCYTOSIS [None]
  - PELVIC HAEMATOMA [None]
  - RENAL FAILURE ACUTE [None]
  - VOMITING [None]
